FAERS Safety Report 7945746-3 (Version None)
Quarter: 2011Q4

REPORT INFORMATION
  Report Type: 
  Country: None (occurrence: None)
  Receive Date: 20111129
  Receipt Date: 20111107
  Transmission Date: 20120403
  Serious: No
  Sender: FDA-Public Use
  Company Number: US-ROXANE LABORATORIES, INC.-2011-RO-01603RO

PATIENT
  Sex: Male

DRUGS (2)
  1. PREDNISONE [Suspect]
     Indication: LUPUS-LIKE SYNDROME
     Dosage: 20 MG
     Route: 048
  2. DIOVAN [Concomitant]

REACTIONS (1)
  - NOCTURIA [None]
